FAERS Safety Report 6783980-9 (Version None)
Quarter: 2010Q2

REPORT INFORMATION
  Report Type: 
  Country: None (occurrence: None)
  Receive Date: 20100622
  Receipt Date: 20100224
  Transmission Date: 20101027
  Serious: No
  Sender: FDA-Public Use
  Company Number: US-BRISTOL-MYERS SQUIBB COMPANY-14992267

PATIENT
  Age: 58 Year
  Sex: Female
  Weight: 66 kg

DRUGS (3)
  1. SINEMET [Suspect]
     Indication: RESTLESS LEGS SYNDROME
     Dosage: 1DF: 24/100MG 2HOURS BEFORE HS
     Route: 048
     Dates: start: 20100112, end: 20100205
  2. KAPIDEX [Suspect]
     Indication: GASTROOESOPHAGEAL REFLUX DISEASE
     Route: 048
     Dates: start: 20100112
  3. ZOFRAN [Suspect]
     Indication: NAUSEA
     Dosage: 4MG 2 HOURS BEFORE HS
     Route: 048
     Dates: start: 20100112

REACTIONS (1)
  - DIARRHOEA [None]
